FAERS Safety Report 7712834-6 (Version None)
Quarter: 2011Q3

REPORT INFORMATION
  Report Type: 
  Country: None (occurrence: None)
  Receive Date: 20110826
  Receipt Date: 20110818
  Transmission Date: 20111222
  Serious: Yes (Other)
  Sender: FDA-Public Use
  Company Number: PHHY2011BR74378

PATIENT
  Sex: Male

DRUGS (4)
  1. OLANZAPINE [Concomitant]
     Dosage: 0.25 DF, DAILY
  2. TEGRETOL [Suspect]
     Indication: CONVULSION
     Dosage: 300 MG, UNK
  3. ALOIS [Concomitant]
     Dosage: 10 MG, UNK
  4. CLONAZEPAM [Concomitant]
     Indication: NERVOUSNESS

REACTIONS (4)
  - DEMENTIA ALZHEIMER'S TYPE [None]
  - ERYTHEMA [None]
  - CENTRAL NERVOUS SYSTEM LESION [None]
  - CONVULSION [None]
